FAERS Safety Report 5448359-0 (Version None)
Quarter: 2007Q3

REPORT INFORMATION
  Report Type: 
  Country: None (occurrence: None)
  Receive Date: 20070905
  Receipt Date: 20070824
  Transmission Date: 20080115
  Serious: Yes (Hospitalization, Other)
  Sender: FDA-Public Use
  Company Number: 163-21880-07030203

PATIENT
  Age: 63 Year
  Sex: Female

DRUGS (19)
  1. REVLIMID [Suspect]
     Indication: MULTIPLE MYELOMA
     Dosage: 25 MG, DAILY X21 DAYS, ORAL
     Route: 048
     Dates: start: 20061130, end: 20070218
  2. DEXAMETHASONE TAB [Concomitant]
  3. LANTUS [Concomitant]
  4. LYRICA [Concomitant]
  5. ALBUTEROL [Concomitant]
  6. CALCIUM (CALCIUM) [Concomitant]
  7. VITAMIN B6 [Concomitant]
  8. FERROUS SULFATE TAB [Concomitant]
  9. ADVAIR DISKUS 100/50 [Concomitant]
  10. ALLOPURINOL [Concomitant]
  11. LEXAPRO [Concomitant]
  12. BACTRIM [Concomitant]
  13. BENICAR [Concomitant]
  14. ZOCOR [Concomitant]
  15. OXYCONTIN [Concomitant]
  16. AMARYL [Concomitant]
  17. COLCHICUM JTL LIQ [Concomitant]
  18. OXYCODONE HCL [Concomitant]
  19. DUONEB [Concomitant]

REACTIONS (14)
  - AMNESIA [None]
  - CEREBRAL ISCHAEMIA [None]
  - CONFUSIONAL STATE [None]
  - DRUG INTERACTION [None]
  - FEELING JITTERY [None]
  - HALLUCINATION [None]
  - HYPERHIDROSIS [None]
  - HYPOGLYCAEMIA [None]
  - MENTAL STATUS CHANGES [None]
  - MYOCLONUS [None]
  - NERVOUSNESS [None]
  - RENAL FAILURE ACUTE [None]
  - TREMOR [None]
  - VERTIGO [None]
